FAERS Safety Report 4558037-8 (Version None)
Quarter: 2005Q1

REPORT INFORMATION
  Report Type: 
  Country: None (occurrence: None)
  Receive Date: 20050121
  Receipt Date: 20040624
  Transmission Date: 20050727
  Serious: No
  Sender: FDA-Public Use
  Company Number: US-BRISTOL-MYERS SQUIBB COMPANY-12624862

PATIENT
  Sex: Female

DRUGS (1)
  1. SERZONE [Suspect]
     Indication: DEPRESSION
     Dosage: HAS NOT TAKEN NEFAZODONE HCL IN OVER 2 YEARS

REACTIONS (4)
  - AGITATION [None]
  - BLOOD POTASSIUM DECREASED [None]
  - PARANOIA [None]
  - SUICIDAL IDEATION [None]
